FAERS Safety Report 6967124-6 (Version None)
Quarter: 2010Q3

REPORT INFORMATION
  Report Type: 
  Country: None (occurrence: None)
  Receive Date: 20100907
  Receipt Date: 20100824
  Transmission Date: 20110219
  Serious: Yes (Death)
  Sender: FDA-Public Use
  Company Number: GB-RANBAXY-2010RR-35516

PATIENT
  Age: 25 Year
  Sex: Female
  Weight: 48 kg

DRUGS (9)
  1. NORTRIPTYLINE HYDROCHLORIDE [Suspect]
     Dosage: UNK
     Route: 048
     Dates: start: 20081209, end: 20081209
  2. IBUPROFEN [Suspect]
     Dosage: UNK
     Route: 048
     Dates: start: 20081209, end: 20081209
  3. CIPRALEX [Suspect]
     Indication: ANXIETY
     Dosage: UNK
     Route: 048
     Dates: start: 20081203, end: 20081209
  4. CIPRALEX [Suspect]
     Indication: DEPRESSION
     Dosage: UNK
     Dates: start: 20080301, end: 20080701
  5. CIPRALEX [Suspect]
     Dosage: UNK
     Dates: start: 20081209, end: 20081209
  6. PROZAC [Suspect]
     Dosage: UNK
     Route: 048
     Dates: start: 20081209, end: 20081209
  7. ALCOHOL [Suspect]
     Dosage: UNK
     Route: 048
     Dates: start: 20081209, end: 20081209
  8. OXAZEPAM [Suspect]
     Dosage: UNK
     Route: 048
     Dates: start: 20081209, end: 20081209
  9. TEMAZEPAM [Suspect]

REACTIONS (3)
  - COMPLETED SUICIDE [None]
  - DEATH [None]
  - INTENTIONAL OVERDOSE [None]
